FAERS Safety Report 4759275-1 (Version None)
Quarter: 2005Q3

REPORT INFORMATION
  Report Type: 
  Country: None (occurrence: None)
  Receive Date: 20050831
  Receipt Date: 20050824
  Transmission Date: 20060218
  Serious: Yes (Other)
  Sender: FDA-Public Use
  Company Number: 216790

PATIENT
  Age: 73 Year
  Sex: Male
  Weight: 71 kg

DRUGS (11)
  1. RITUXAN [Suspect]
     Indication: NON-HODGKIN'S LYMPHOMA
     Dosage: 600 MG, INTRAVENOUS
     Route: 042
     Dates: start: 20040823
  2. CYCLOPHOSPHAMIDE [Suspect]
     Indication: NON-HODGKIN'S LYMPHOMA
     Dosage: 1200 MG, INTRAVENOUS
     Route: 042
     Dates: start: 20050802
  3. ONCOVIN [Suspect]
     Indication: NON-HODGKIN'S LYMPHOMA
     Dosage: 2MG, INTRAVENOUS
     Route: 042
     Dates: start: 20050802
  4. PREDNISONE [Suspect]
     Indication: NON-HODGKIN'S LYMPHOMA
     Dosage: 60 MG, ORAL
     Route: 048
     Dates: start: 20050802
  5. CALONAL (ACETAMINOPHEN) [Concomitant]
  6. VENA (DIPHENHYDRAMINE HYDROCHLORIDE) [Concomitant]
  7. MAGNESUM OXIDE (MAGNESIUM OXIDE) [Concomitant]
  8. MUCOSTA (REBAMIPIDE) [Concomitant]
  9. LEVOFLOXACIN [Concomitant]
  10. NIFEDIPINE [Concomitant]
  11. ENALARPIL (ENALAPRIL) [Concomitant]

REACTIONS (1)
  - NEUTROPHIL COUNT DECREASED [None]
